FAERS Safety Report 5856539-5 (Version None)
Quarter: 2008Q3

REPORT INFORMATION
  Report Type: 
  Country: None (occurrence: None)
  Receive Date: 20080822
  Receipt Date: 20080822
  Transmission Date: 20090109
  Serious: Yes (Hospitalization)
  Sender: FDA-Public Use
  Company Number: None

PATIENT
  Sex: Female

DRUGS (1)
  1. CELEXA [Suspect]
     Dosage: 120 MG QHS PO
     Route: 048

REACTIONS (5)
  - AMNESIA [None]
  - ANOREXIA [None]
  - INSOMNIA [None]
  - MIGRAINE [None]
  - TREATMENT NONCOMPLIANCE [None]
